FAERS Safety Report 11221513 (Version 2)
Quarter: 2015Q3

REPORT INFORMATION
  Report Type: Spontaneous
  Country: GB (occurrence: GB)
  Receive Date: 20150626
  Receipt Date: 20150721
  Transmission Date: 20151125
  Serious: Yes (Other)
  Sender: FDA-Public Use
  Company Number: GB-WATSON-2015-12506

PATIENT
  Age: 22 Year
  Sex: Male
  Weight: 64 kg

DRUGS (4)
  1. DERMOL                             /00337102/ [Concomitant]
     Active Substance: CLOBETASOL PROPIONATE
     Indication: PRODUCT USED FOR UNKNOWN INDICATION
     Dosage: 1 DF, UNKNOWN. 1 APPLICATION WHEN WASHING
     Route: 065
     Dates: start: 20150527
  2. ADAPALENE. [Concomitant]
     Active Substance: ADAPALENE
     Indication: PRODUCT USED FOR UNKNOWN INDICATION
     Dosage: 1 DF, DAILY. APPLY ONCE DAILY
     Route: 065
     Dates: start: 20150527
  3. LYMECYCLINE [Concomitant]
     Active Substance: LYMECYCLINE
     Indication: PRODUCT USED FOR UNKNOWN INDICATION
     Dosage: 1 DF, DAILY
     Route: 065
     Dates: start: 20150527
  4. SERTRALINE [Suspect]
     Active Substance: SERTRALINE HYDROCHLORIDE
     Indication: PRODUCT USED FOR UNKNOWN INDICATION
     Dosage: UNK
     Route: 048
     Dates: start: 20150527, end: 20150530

REACTIONS (3)
  - Urinary retention [Recovering/Resolving]
  - Vomiting [Recovering/Resolving]
  - Pyrexia [Recovering/Resolving]

NARRATIVE: CASE EVENT DATE: 20150527
